FAERS Safety Report 8018736-2 (Version None)
Quarter: 2012Q1

REPORT INFORMATION
  Report Type: 
  Country: None (occurrence: None)
  Receive Date: 20120103
  Receipt Date: 20120103
  Transmission Date: 20120608
  Serious: Yes (Life-Threatening)
  Sender: FDA-Public Use
  Company Number: None

PATIENT
  Age: 63 Year
  Sex: Female
  Weight: 128 kg

DRUGS (20)
  1. KAYEXALATE [Concomitant]
     Route: 048
  2. PRAVASTATIN [Concomitant]
  3. COLACE [Concomitant]
     Route: 048
  4. ONDANSETRON [Concomitant]
     Route: 042
  5. FERROUS SULFATE TAB [Concomitant]
     Route: 048
  6. FAMOTIDINE [Concomitant]
     Route: 048
  7. SODIUM BICARBONATE [Concomitant]
     Route: 042
  8. DIPHENHYDRAMINE HCL [Concomitant]
     Route: 048
  9. VANCOMYCIN [Concomitant]
     Route: 042
  10. MILK OF MAGNESIA TAB [Concomitant]
  11. HYDROCODONE BITARTRATE + ACETAMINOPHEN [Concomitant]
     Route: 048
  12. PROCRIT [Concomitant]
     Route: 042
  13. LOVENOX [Concomitant]
     Route: 058
  14. CELEBREX [Suspect]
     Indication: ANTIINFLAMMATORY THERAPY
     Dosage: 400 G
     Route: 048
     Dates: start: 20111205, end: 20111206
  15. TRAMADOL HCL [Concomitant]
     Indication: PAIN
     Dosage: 100 MG
     Route: 048
     Dates: start: 20111206, end: 20111208
  16. ZOLPIDEM [Concomitant]
     Route: 048
  17. METOCLOPRAMIDE [Concomitant]
     Route: 042
  18. MORPHINE SULFATE [Concomitant]
  19. APAP TAB [Concomitant]
     Route: 048
  20. VENOFER [Concomitant]
     Route: 042

REACTIONS (3)
  - BLISTER [None]
  - SKIN EXFOLIATION [None]
  - TOXIC EPIDERMAL NECROLYSIS [None]
